FAERS Safety Report 4687219-X (Version None)
Quarter: 2005Q2

REPORT INFORMATION
  Report Type: 
  Country: None (occurrence: None)
  Receive Date: 20050606
  Receipt Date: 20050525
  Transmission Date: 20051028
  Serious: Yes (Hospitalization)
  Sender: FDA-Public Use
  Company Number: DE-2005-003042

PATIENT
  Age: 29 Year
  Sex: Female

DRUGS (4)
  1. BETAFERON(INTERFERON BETA - 1B) INJECTION, 250UG [Suspect]
     Dosage: SEE IMAGE
     Route: 058
     Dates: start: 20000101, end: 20040601
  2. BETAFERON(INTERFERON BETA - 1B) INJECTION, 250UG [Suspect]
     Dosage: SEE IMAGE
     Route: 058
     Dates: start: 20050201
  3. IBUPROFEN [Concomitant]
  4. ACETAMINOPHEN [Concomitant]

REACTIONS (3)
  - DIFFICULTY IN WALKING [None]
  - JOINT SWELLING [None]
  - OEDEMA PERIPHERAL [None]
